FAERS Safety Report 8096046-5 (Version None)
Quarter: 2012Q1

REPORT INFORMATION
  Report Type: 
  Country: None (occurrence: None)
  Receive Date: 20120129
  Receipt Date: 20111213
  Transmission Date: 20120608
  Serious: No
  Sender: FDA-Public Use
  Company Number: US-ABBOTT-11P-163-0883773-00

PATIENT
  Sex: Female

DRUGS (2)
  1. HUMIRA [Suspect]
     Indication: PRODUCT USED FOR UNKNOWN INDICATION
     Dosage: 3 DOSES FROM STARTER PACK
     Route: 058
     Dates: start: 20111101
  2. UNKNOWN ALLERGY MEDICATION [Concomitant]
     Indication: HYPERSENSITIVITY

REACTIONS (6)
  - LYMPHADENOPATHY [None]
  - LIP SWELLING [None]
  - OROPHARYNGEAL PAIN [None]
  - INFECTION [None]
  - RASH PRURITIC [None]
  - GENERALISED ERYTHEMA [None]
